FAERS Safety Report 18944893 (Version 2)
Quarter: 2021Q1

REPORT INFORMATION
  Report Type: Report from Study
  Country: US (occurrence: US)
  Receive Date: 20210226
  Receipt Date: 20210319
  Transmission Date: 20210420
  Serious: No
  Sender: FDA-Public Use
  Company Number: US-BIOVITRUM-2021US1887

PATIENT
  Sex: Male

DRUGS (3)
  1. SYNAGIS [Suspect]
     Active Substance: PALIVIZUMAB
     Indication: ANTIVIRAL PROPHYLAXIS
     Route: 030
  2. POLY?VI?SOL [Concomitant]
     Active Substance: VITAMINS
  3. IRON MYLICON INFANTS GAS RELIE [Concomitant]

REACTIONS (2)
  - Injection site rash [Unknown]
  - Rash [Unknown]
